FAERS Safety Report 5964417-6 (Version None)
Quarter: 2008Q4

REPORT INFORMATION
  Report Type: 
  Country: None (occurrence: None)
  Receive Date: 20081124
  Receipt Date: 20081117
  Transmission Date: 20090506
  Serious: Yes (Other)
  Sender: FDA-Public Use
  Company Number: CA-PFIZER INC-2008097665

PATIENT
  Sex: Male

DRUGS (1)
  1. LIPITOR [Suspect]
     Route: 048

REACTIONS (10)
  - ABDOMINAL PAIN [None]
  - BLINDNESS UNILATERAL [None]
  - CONSTIPATION [None]
  - EYE HAEMORRHAGE [None]
  - GASTROINTESTINAL PAIN [None]
  - HYPERTENSION [None]
  - LIVER DISORDER [None]
  - MOUTH ULCERATION [None]
  - PAIN [None]
  - VISUAL ACUITY REDUCED [None]
